FAERS Safety Report 13700027 (Version 1)
Quarter: 2017Q2

REPORT INFORMATION
  Report Type: Report from Study
  Country: CA (occurrence: CA)
  Receive Date: 20170629
  Receipt Date: 20170629
  Transmission Date: 20170830
  Serious: Yes (Other)
  Sender: FDA-Public Use
  Company Number: CA-ROCHE-1570134

PATIENT
  Sex: Female

DRUGS (3)
  1. ACTEMRA [Suspect]
     Active Substance: TOCILIZUMAB
     Indication: RHEUMATOID ARTHRITIS
     Route: 058
     Dates: start: 20150213, end: 2017
  2. PREDNISONE. [Concomitant]
     Active Substance: PREDNISONE
  3. SULPHASALAZINE [Concomitant]
     Active Substance: SULFASALAZINE

REACTIONS (3)
  - Renal disorder [Unknown]
  - Rheumatoid factor increased [Unknown]
  - Liver disorder [Unknown]
